FAERS Safety Report 5945634-8 (Version None)
Quarter: 2008Q4

REPORT INFORMATION
  Report Type: 
  Country: None (occurrence: None)
  Receive Date: 20081107
  Receipt Date: 20081031
  Transmission Date: 20090506
  Serious: Yes (Other)
  Sender: FDA-Public Use
  Company Number: US-PFIZER INC-2008092058

PATIENT
  Sex: Male

DRUGS (3)
  1. CELEBREX [Suspect]
     Indication: DIVERTICULITIS
     Dates: start: 20060101
  2. CELEBREX [Suspect]
     Indication: ARTHRITIS
  3. VIAGRA [Suspect]

REACTIONS (3)
  - ARRHYTHMIA [None]
  - BLOOD CHOLESTEROL INCREASED [None]
  - HYPERTENSION [None]
